FAERS Safety Report 25011955 (Version 5)
Quarter: 2025Q2

REPORT INFORMATION
  Report Type: Spontaneous
  Country: JP (occurrence: JP)
  Receive Date: 20250226
  Receipt Date: 20250411
  Transmission Date: 20250717
  Serious: Yes (Other)
  Sender: AMGEN
  Company Number: JP-KYOWAKIRIN-2025KK003100

PATIENT
  Age: 76 Year
  Sex: Male

DRUGS (4)
  1. DARBEPOETIN ALFA [Suspect]
     Active Substance: DARBEPOETIN ALFA
     Indication: Product used for unknown indication
     Dosage: 30 MICROGRAM, QWK
     Route: 040
     Dates: start: 199907
  2. DARBEPOETIN ALFA [Suspect]
     Active Substance: DARBEPOETIN ALFA
     Dosage: 60 UG, 1X/WEEK
     Route: 040
     Dates: start: 20240408
  3. DARBEPOETIN ALFA [Suspect]
     Active Substance: DARBEPOETIN ALFA
     Dosage: 120 UG, 1X/WEEK
     Route: 040
     Dates: start: 20240422
  4. DARBEPOETIN ALFA [Suspect]
     Active Substance: DARBEPOETIN ALFA
     Dosage: 120 UG, 1X/WEEK
     Route: 040
     Dates: start: 20241002

REACTIONS (2)
  - Aplasia pure red cell [Unknown]
  - Myelodysplastic syndrome [Unknown]
